FAERS Safety Report 10204953 (Version 1)
Quarter: 2014Q2

REPORT INFORMATION
  Report Type: Spontaneous
  Country: US (occurrence: US)
  Receive Date: 20140529
  Receipt Date: 20140529
  Transmission Date: 20141212
  Serious: No
  Sender: FDA-Public Use
  Company Number: US-BAYER-2014-079998

PATIENT
  Sex: Female

DRUGS (1)
  1. SKYLA [Suspect]
     Dosage: 12 MCG/24HR, CONT
     Route: 015
     Dates: start: 201405

REACTIONS (3)
  - Coital bleeding [None]
  - Abdominal pain lower [None]
  - Pelvic pain [None]
